FAERS Safety Report 16884871 (Version 4)
Quarter: 2020Q3

REPORT INFORMATION
  Report Type: Report from Study
  Country: US (occurrence: US)
  Receive Date: 20191004
  Receipt Date: 20200717
  Transmission Date: 20201102
  Serious: Yes (Hospitalization, Other)
  Sender: FDA-Public Use
  Company Number: US-ROCHE-2423848

PATIENT
  Age: 45 Year
  Sex: Female

DRUGS (7)
  1. GUADECITABINE [Suspect]
     Active Substance: GUADECITABINE
     Indication: MALIGNANT PERITONEAL NEOPLASM
     Dosage: LAST DOSE ON 01/MAR/2019 (181 MG)
     Route: 058
     Dates: start: 20190225
  2. ATEZOLIZUMAB. [Suspect]
     Active Substance: ATEZOLIZUMAB
     Indication: MALIGNANT PERITONEAL NEOPLASM
     Dosage: LAST DOSE ON 04/MAR/2019 PRIOR TO EVENT ONSET
     Route: 041
     Dates: start: 20190304
  3. CARBOPLATIN. [Concomitant]
     Active Substance: CARBOPLATIN
     Dates: start: 201802, end: 201811
  4. PACLITAXEL. [Concomitant]
     Active Substance: PACLITAXEL
     Dates: start: 201703, end: 201707
  5. CARBOPLATIN. [Concomitant]
     Active Substance: CARBOPLATIN
     Dates: start: 201703, end: 201707
  6. GEMCITABINE HYDROCHLORIDE. [Concomitant]
     Active Substance: GEMCITABINE HYDROCHLORIDE
     Dates: start: 201802, end: 201811
  7. BEVACIZUMAB. [Concomitant]
     Active Substance: BEVACIZUMAB
     Dates: start: 201802, end: 201811

REACTIONS (6)
  - Lymphocyte count decreased [Unknown]
  - Hyponatraemia [Unknown]
  - Viral infection [Unknown]
  - White blood cell count decreased [Unknown]
  - Pyrexia [Recovered/Resolved with Sequelae]
  - Anaemia [Unknown]

NARRATIVE: CASE EVENT DATE: 20190315
